FAERS Safety Report 4517320-2 (Version None)
Quarter: 2004Q4

REPORT INFORMATION
  Report Type: 
  Country: None (occurrence: None)
  Receive Date: 20041008
  Receipt Date: 20040311
  Transmission Date: 20050328
  Serious: Yes (Other)
  Sender: FDA-Public Use
  Company Number: 23319

PATIENT
  Age: 48 Year
  Sex: Female

DRUGS (5)
  1. MAXAIR [Suspect]
     Indication: ASTHMA
     Dosage: 200 MCG, 3 TOTAL, RESPIRATORY  (INHALATION)
     Route: 055
     Dates: start: 20030312, end: 20030801
  2. MIRCETTE [Concomitant]
  3. TOPROL-XL [Concomitant]
  4. TYLENOL (CAPLET) [Concomitant]
  5. ALLEGRA [Concomitant]

REACTIONS (1)
  - HEART RATE INCREASED [None]
